FAERS Safety Report 6347549-2 (Version None)
Quarter: 2009Q3

REPORT INFORMATION
  Report Type: 
  Country: None (occurrence: None)
  Receive Date: 20090910
  Receipt Date: 20090904
  Transmission Date: 20100115
  Serious: Yes (Death, Other)
  Sender: FDA-Public Use
  Company Number: GB-TEVA-208293ISR

PATIENT
  Age: 64 Year
  Sex: Male

DRUGS (2)
  1. PREDNISOLONE [Suspect]
  2. CYCLOSPORINE [Suspect]

REACTIONS (6)
  - ACUTE GRAFT VERSUS HOST DISEASE IN SKIN [None]
  - DIARRHOEA [None]
  - GASTROENTERITIS NOROVIRUS [None]
  - MALNUTRITION [None]
  - NAUSEA [None]
  - VOMITING [None]
